APPROVED DRUG PRODUCT: RISVAN
Active Ingredient: RISPERIDONE
Strength: 100MG
Dosage Form/Route: FOR SUSPENSION, EXTENDED RELEASE;INTRAMUSCULAR
Application: N214835 | Product #002
Applicant: LABORATORIOS FARMACEUTICOS ROVI SA
Approved: Mar 29, 2024 | RLD: Yes | RS: No | Type: DISCN

PATENTS:
Patent 11752092 | Expires: May 31, 2031
Patent 11241377 | Expires: May 31, 2031
Patent 11173110 | Expires: May 31, 2031
Patent 11007139 | Expires: May 31, 2031
Patent 10195138 | Expires: May 31, 2031
Patent 10182982 | Expires: May 31, 2031
Patent 11759416 | Expires: May 31, 2031
Patent 11752094 | Expires: May 31, 2031
Patent 10881605 | Expires: May 31, 2031
Patent 10058504 | Expires: May 31, 2031
Patent 10085936 | Expires: May 31, 2031
Patent 10463607 | Expires: May 31, 2031
Patent 11752093 | Expires: May 31, 2031
Patent 10335366 | Expires: May 31, 2031

EXCLUSIVITY:
Code: NP | Date: Mar 29, 2027